FAERS Safety Report 15566792 (Version 1)
Quarter: 2018Q4

REPORT INFORMATION
  Report Type: Spontaneous
  Country: FR (occurrence: FR)
  Receive Date: 20181030
  Receipt Date: 20181030
  Transmission Date: 20190205
  Serious: Yes (Hospitalization)
  Sender: FDA-Public Use
  Company Number: FR-PFIZER INC-2018434777

PATIENT
  Age: 44 Year
  Sex: Male
  Weight: 88 kg

DRUGS (9)
  1. XANAX [Suspect]
     Active Substance: ALPRAZOLAM
     Indication: ANXIETY
     Dosage: 0.75 MG, DAILY (MORNING NOON AND EVENING)
     Route: 048
     Dates: start: 20171121, end: 20180810
  2. QUETIAPINE. [Suspect]
     Active Substance: QUETIAPINE
     Indication: BIPOLAR DISORDER
     Dosage: 400 MG, 1X/DAY (AT BEDTIME)
     Route: 048
     Dates: start: 20170313, end: 20180824
  3. VALIUM [Suspect]
     Active Substance: DIAZEPAM
     Indication: AGITATION
     Dosage: 10 MG, AS NEEDED (10 MG IF AGITATED THEN 10 MG MORNING, NOON AND EVENING)
     Route: 048
     Dates: start: 20180812
  4. LOXAPAC [LOXAPINE SUCCINATE] [Suspect]
     Active Substance: LOXAPINE SUCCINATE
     Indication: AGITATION
     Dosage: 75 MG, DAILY
     Route: 048
     Dates: start: 20180810, end: 20180825
  5. TERALITHE [Concomitant]
     Active Substance: LITHIUM CARBONATE
     Indication: BIPOLAR DISORDER
     Dosage: 1200 MG, 1X/DAY (AT BEDTIME)
     Route: 048
     Dates: start: 20170529
  6. EFFEXOR [Suspect]
     Active Substance: VENLAFAXINE HYDROCHLORIDE
     Indication: DEPRESSION
     Dosage: 225 MG, 1X/DAY (IN THE MORNING)
     Route: 048
     Dates: start: 20180222, end: 20180810
  7. NORSET [Suspect]
     Active Substance: MIRTAZAPINE
     Indication: DEPRESSION
     Dosage: 45 MG, 1X/DAY (AT BEDTIME)
     Route: 048
     Dates: start: 20171205, end: 20180810
  8. LEPTICUR [Suspect]
     Active Substance: TROPATEPINE HYDROCHLORIDE
     Indication: BIPOLAR DISORDER
     Dosage: 30 MG, 1X/DAY
     Route: 048
     Dates: start: 20161001, end: 20180810
  9. CLOMIPRAMINE HYDROCHLORIDE. [Suspect]
     Active Substance: CLOMIPRAMINE HYDROCHLORIDE
     Indication: DEPRESSION
     Dosage: 75 MG, 1X/DAY (75 MG IN THE EVENING)
     Dates: start: 20180619, end: 20180810

REACTIONS (1)
  - Extrapyramidal disorder [Not Recovered/Not Resolved]

NARRATIVE: CASE EVENT DATE: 20180823
